FAERS Safety Report 7460654-2 (Version None)
Quarter: 2011Q2

REPORT INFORMATION
  Report Type: 
  Country: None (occurrence: None)
  Receive Date: 20110505
  Receipt Date: 20110422
  Transmission Date: 20111010
  Serious: Yes (Other)
  Sender: FDA-Public Use
  Company Number: JP-EISAI INC-E2020-08900-SPO-JP

PATIENT
  Age: 77 Year
  Sex: Male

DRUGS (4)
  1. ARICEPT [Suspect]
     Route: 048
     Dates: start: 20100417, end: 20110317
  2. ROZEREM [Concomitant]
     Route: 048
  3. ARICEPT [Suspect]
     Indication: DEMENTIA ALZHEIMER'S TYPE
     Route: 048
     Dates: start: 20100402, end: 20100416
  4. YOKU-KAN-SAN [Concomitant]
     Route: 048

REACTIONS (1)
  - PANCYTOPENIA [None]
